FAERS Safety Report 8960169 (Version 1)
Quarter: 2012Q4

REPORT INFORMATION
  Report Type: 
  Country: IE (occurrence: US)
  Receive Date: 20121212
  Receipt Date: 20121212
  Transmission Date: 20130627
  Serious: Yes (Other)
  Sender: FDA-Public Use
  Company Number: IE-MYLANLABS-2012S1025097

PATIENT
  Age: 66 Year
  Sex: Female

DRUGS (3)
  1. AZATHIOPRINE [Suspect]
     Indication: DERMATOMYOSITIS
     Dosage: 100 mg/day
     Route: 065
  2. METHOTREXATE [Suspect]
     Dosage: 10 mg/week
     Route: 065
  3. HYDROXYCHLOROQUINE [Concomitant]
     Indication: RHEUMATOID ARTHRITIS
     Dosage: 400 mg/day
     Route: 065

REACTIONS (1)
  - Progressive multifocal leukoencephalopathy [Unknown]
